FAERS Safety Report 4466159-5 (Version None)
Quarter: 2004Q3

REPORT INFORMATION
  Report Type: 
  Country: None (occurrence: None)
  Receive Date: 20040930
  Receipt Date: 20040917
  Transmission Date: 20050211
  Serious: Yes (Other)
  Sender: FDA-Public Use
  Company Number: 2004056158

PATIENT
  Sex: 0

DRUGS (11)
  1. ATARAX [Suspect]
     Indication: PREOPERATIVE CARE
     Dosage: 50 MG (50 MG, 1 IN 1D), INTRAMUSCULAR
     Route: 030
     Dates: start: 20040611, end: 20040611
  2. WARFARIN (WARFARIN) [Concomitant]
  3. ISOSORBIDE MONONITRATE [Concomitant]
  4. FUROSEMIDE [Concomitant]
  5. SPIRONOLACTONE [Concomitant]
  6. ENALAPRIL MALEATE [Concomitant]
  7. REBAMIPIDE (REBAMIPIDE) [Concomitant]
  8. RANITIDINE HYDROCHLORIDE [Concomitant]
  9. CILOSTAZOL [Concomitant]
  10. NITRAZEPAM [Concomitant]
  11. CARVEDILOL [Concomitant]

REACTIONS (3)
  - INJECTION SITE NECROSIS [None]
  - MEDICATION ERROR [None]
  - PROCEDURAL COMPLICATION [None]
